FAERS Safety Report 5906115-0 (Version None)
Quarter: 2008Q4

REPORT INFORMATION
  Report Type: 
  Country: None (occurrence: None)
  Receive Date: 20081002
  Receipt Date: 20080924
  Transmission Date: 20090506
  Serious: Yes (Life-Threatening)
  Sender: FDA-Public Use
  Company Number: PHHY2008DE22566

PATIENT
  Age: 73 Year
  Sex: Male
  Weight: 96 kg

DRUGS (4)
  1. EUCREAS [Suspect]
     Indication: TYPE 2 DIABETES MELLITUS
     Dosage: 1000/50(1 DF, 2 IN 1 DAY)
     Dates: start: 20080521
  2. ALLO-300 [Concomitant]
     Dosage: 0.5 DF, EVERY DAY
  3. SIMVABETA [Concomitant]
     Dosage: 0.25 DF EVERY DAY
  4. BISOPROLOL [Concomitant]
     Dosage: 1 DF EVERY DAY

REACTIONS (3)
  - DYSPNOEA EXERTIONAL [None]
  - PAIN IN EXTREMITY [None]
  - THROMBOCYTOPENIA [None]
